FAERS Safety Report 25545775 (Version 1)
Quarter: 2025Q3

REPORT INFORMATION
  Report Type: Spontaneous
  Country: EU (occurrence: EU)
  Receive Date: 20250712
  Receipt Date: 20250712
  Transmission Date: 20251021
  Serious: Yes (Hospitalization)
  Sender: RECORDATI
  Company Number: None

PATIENT
  Age: 19 Year
  Sex: Male
  Weight: 62 kg

DRUGS (4)
  1. COSMEGEN [Suspect]
     Active Substance: DACTINOMYCIN
     Indication: Rhabdomyosarcoma
     Dosage: 1.5 MILLIGRAM/SQ. METER, Q3W (0.5 MG POWDER FOR SOLUTION FOR INJECTION)
     Route: 042
     Dates: start: 20250227
  2. IFOSFAMIDE [Suspect]
     Active Substance: IFOSFAMIDE
     Indication: Rhabdomyosarcoma
     Dosage: 3 GRAM/SQ. METER, Q3W, EVERY 21 DAYS (
     Route: 042
     Dates: start: 20250227
  3. IRINOTECAN [Suspect]
     Active Substance: IRINOTECAN
     Indication: Rhabdomyosarcoma
     Dosage: 5 MILLIGRAM/SQ. METER, Q3W (20 MG/ML SOLUTION FOR DILUTION FOR INFUSION)
     Route: 042
     Dates: start: 20250227
  4. VINCRISTINE [Suspect]
     Active Substance: VINCRISTINE
     Indication: Rhabdomyosarcoma
     Dosage: 1.5 MILLIGRAM/SQ. METER, Q3W (2 MG/2 ML SOLUTION INJECTABLE)
     Route: 042
     Dates: start: 20250227

REACTIONS (1)
  - Cardiac failure [Not Recovered/Not Resolved]

NARRATIVE: CASE EVENT DATE: 20250523
